FAERS Safety Report 8057616-3 (Version None)
Quarter: 2012Q1

REPORT INFORMATION
  Report Type: 
  Country: None (occurrence: None)
  Receive Date: 20120120
  Receipt Date: 20120110
  Transmission Date: 20120608
  Serious: No
  Sender: FDA-Public Use
  Company Number: US-BIOGENIDEC-2010BI023773

PATIENT
  Sex: Female

DRUGS (2)
  1. TYSABRI [Suspect]
     Indication: MULTIPLE SCLEROSIS
     Route: 042
  2. TYSABRI [Suspect]
     Route: 042
     Dates: start: 20061213

REACTIONS (8)
  - URINARY TRACT INFECTION [None]
  - LACERATION [None]
  - ALOPECIA [None]
  - FUNGAL INFECTION [None]
  - FLUSHING [None]
  - SINUSITIS [None]
  - ONYCHOCLASIS [None]
  - ONYCHOMYCOSIS [None]
